FAERS Safety Report 25435279 (Version 9)
Quarter: 2025Q4

REPORT INFORMATION
  Report Type: Report from Study
  Country: US (occurrence: US)
  Receive Date: 20250613
  Receipt Date: 20251003
  Transmission Date: 20260117
  Serious: No
  Sender: MALLINCKRODT
  Company Number: US-MALLINCKRODT-MNK202503477

PATIENT
  Age: 84 Year
  Sex: Female
  Weight: 170 kg

DRUGS (7)
  1. CORTICOTROPIN [Suspect]
     Active Substance: CORTICOTROPIN
     Indication: Iridocyclitis
     Route: 058
     Dates: start: 20250531
  2. CALCIUM [Concomitant]
     Active Substance: CALCIUM
     Dosage: UNKNOWN
  3. CALCIUM [Concomitant]
     Active Substance: CALCIUM
     Dosage: UNKNOWN
  4. CHOLECALCIFEROL [Concomitant]
     Active Substance: CHOLECALCIFEROL
     Dosage: UNKNOWN
  5. CHOLECALCIFEROL [Concomitant]
     Active Substance: CHOLECALCIFEROL
     Dosage: UNKNOWN
  6. ALCOHOL (ALCOHOL) [Concomitant]
     Active Substance: ALCOHOL
     Dosage: UNKNOWN
  7. LEVOTHYROXINE [Concomitant]
     Active Substance: LEVOTHYROXINE
     Dosage: UNKNOWN

REACTIONS (10)
  - Weight decreased [Unknown]
  - Contusion [Unknown]
  - Mass [Unknown]
  - Neuroma [Unknown]
  - Visual impairment [Not Recovered/Not Resolved]
  - Vision blurred [Not Recovered/Not Resolved]
  - Joint swelling [Recovered/Resolved]
  - Injection site swelling [Unknown]
  - Injection site pain [Recovering/Resolving]
  - Injection site discharge [Unknown]

NARRATIVE: CASE EVENT DATE: 20250101
